FAERS Safety Report 17500564 (Version 1)
Quarter: 2020Q1

REPORT INFORMATION
  Report Type: Spontaneous
  Country: UG (occurrence: UG)
  Receive Date: 20200305
  Receipt Date: 20200305
  Transmission Date: 20200409
  Serious: Yes (Hospitalization)
  Sender: FDA-Public Use
  Company Number: UG-STRIDES ARCOLAB LIMITED-2020SP002587

PATIENT
  Age: 10 Year
  Sex: Female

DRUGS (3)
  1. ZIDOVUDINE. [Suspect]
     Active Substance: ZIDOVUDINE
     Indication: HIV INFECTION
     Dosage: UNK
     Route: 065
  2. LOPINAVIR/RITONAVIR [Suspect]
     Active Substance: LOPINAVIR\RITONAVIR
     Indication: HIV INFECTION
     Dosage: UNK
     Route: 065
  3. LAMIVUDINE. [Suspect]
     Active Substance: LAMIVUDINE
     Indication: HIV INFECTION
     Dosage: UNK
     Route: 065

REACTIONS (10)
  - Vomiting [Recovered/Resolved]
  - Night sweats [Unknown]
  - Immune reconstitution inflammatory syndrome [Unknown]
  - Pyrexia [Unknown]
  - Rash [Unknown]
  - Diarrhoea [Unknown]
  - Meningitis cryptococcal [Recovered/Resolved]
  - Generalised tonic-clonic seizure [Recovered/Resolved]
  - Weight decreased [Unknown]
  - Headache [Recovered/Resolved]
